FAERS Safety Report 10945318 (Version 1)
Quarter: 2015Q1

REPORT INFORMATION
  Report Type: Spontaneous
  Country: BE (occurrence: BE)
  Receive Date: 20150323
  Receipt Date: 20150323
  Transmission Date: 20150721
  Serious: Yes (Life-Threatening, Hospitalization)
  Sender: FDA-Public Use
  Company Number: BE-BRISTOL-MYERS SQUIBB COMPANY-BMS-2015-016919

PATIENT
  Age: 80 Year
  Sex: Female

DRUGS (9)
  1. EMCONCOR [Concomitant]
     Active Substance: BISOPROLOL FUMARATE
     Dosage: 5 MG, BID
     Route: 048
  2. GLUCOPHAGE [Suspect]
     Active Substance: METFORMIN HYDROCHLORIDE
     Indication: DIABETES MELLITUS
     Dosage: 850 MG, TID
     Route: 048
  3. LANOXIN [Suspect]
     Active Substance: DIGOXIN
     Indication: PRODUCT USED FOR UNKNOWN INDICATION
     Dosage: 250 MG, QD
     Route: 048
  4. BURINEX [Suspect]
     Active Substance: BUMETANIDE
     Indication: PRODUCT USED FOR UNKNOWN INDICATION
     Dosage: 1 MG, QD
     Route: 048
  5. APROVEL [Concomitant]
     Active Substance: IRBESARTAN
     Indication: PRODUCT USED FOR UNKNOWN INDICATION
     Route: 048
  6. ZANIDIP [Concomitant]
     Active Substance: LERCANIDIPINE HYDROCHLORIDE
     Indication: PRODUCT USED FOR UNKNOWN INDICATION
     Dosage: 10 MG, QD
     Route: 048
  7. XARELTO [Concomitant]
     Active Substance: RIVAROXABAN
     Indication: ATRIAL FIBRILLATION
     Dosage: 15 MG, QD
     Route: 048
  8. CORUNO [Concomitant]
     Active Substance: MOLSIDOMINE
     Indication: PRODUCT USED FOR UNKNOWN INDICATION
     Route: 048
  9. UNI DIAMICRON [Concomitant]
     Active Substance: GLICLAZIDE
     Indication: DIABETES MELLITUS
     Dosage: 120 MG, QD
     Route: 048

REACTIONS (2)
  - Lactic acidosis [Recovered/Resolved]
  - Toxicity to various agents [Recovered/Resolved]

NARRATIVE: CASE EVENT DATE: 20140903
